FAERS Safety Report 8437163-7 (Version None)
Quarter: 2012Q2

REPORT INFORMATION
  Report Type: 
  Country: None (occurrence: None)
  Receive Date: 20120614
  Receipt Date: 20120301
  Transmission Date: 20120825
  Serious: Yes (Other)
  Sender: FDA-Public Use
  Company Number: US-AMGEN-USASP2011002203

PATIENT
  Age: 89 Year
  Sex: Male
  Weight: 57.596 kg

DRUGS (17)
  1. ULTRAM [Concomitant]
  2. CALCIUM [Concomitant]
     Dosage: 800 MG, QD
  3. LEUCOVORIN CALCIUM [Concomitant]
  4. REMERON [Concomitant]
     Indication: ANXIETY
     Dosage: 15 MG, QHS
     Route: 048
  5. ASPIRIN [Concomitant]
     Indication: DIABETES MELLITUS
     Dosage: 81 MG, QD
     Route: 048
  6. VITAMIN D [Concomitant]
     Dosage: 600 IU, QD
  7. FINASTERIDE [Concomitant]
  8. NEXIUM [Concomitant]
  9. COLCHICINE [Concomitant]
  10. ALLOPURINOL [Concomitant]
  11. VITAMIN C                          /00008001/ [Concomitant]
  12. PROLIA [Suspect]
     Indication: OSTEOPOROSIS
     Dosage: 60 MG, Q6MO
     Route: 058
     Dates: start: 20101201, end: 20101201
  13. ZETIA [Concomitant]
     Indication: HYPERLIPIDAEMIA
     Dosage: 10 MG, QD
     Route: 048
  14. RAMIPRIL [Concomitant]
  15. PLENDIL [Concomitant]
     Indication: HYPERTENSION
     Dosage: 10 MG, QD
     Route: 048
  16. VITAMIN B12                        /00056201/ [Concomitant]
  17. METHOTREXATE [Concomitant]
     Indication: TEMPORAL ARTERITIS
     Dosage: 2.5 MG, BID
     Route: 048

REACTIONS (4)
  - RASH [None]
  - DIARRHOEA [None]
  - DERMATITIS [None]
  - HYPOCALCAEMIA [None]
